FAERS Safety Report 5120594-0 (Version None)
Quarter: 2006Q4

REPORT INFORMATION
  Report Type: 
  Country: None (occurrence: None)
  Receive Date: 20061002
  Receipt Date: 20060921
  Transmission Date: 20070319
  Serious: Yes (Life-Threatening)
  Sender: FDA-Public Use
  Company Number: PHRM2006FR02615

PATIENT
  Age: 56 Year
  Sex: Female

DRUGS (1)
  1. VISUDYNE [Suspect]
     Indication: CHOROIDAL NEOVASCULARISATION

REACTIONS (1)
  - ANGIONEUROTIC OEDEMA [None]
